FAERS Safety Report 7645148-3 (Version None)
Quarter: 2011Q3

REPORT INFORMATION
  Report Type: 
  Country: None (occurrence: None)
  Receive Date: 20110729
  Receipt Date: 20110719
  Transmission Date: 20111222
  Serious: Yes (Other)
  Sender: FDA-Public Use
  Company Number: US-JNJFOC-20101005849

PATIENT
  Sex: Female
  Weight: 88.45 kg

DRUGS (1)
  1. TYLENOL COLD + FLU WARMING HONEY LEMON [Suspect]
     Indication: INFLUENZA LIKE ILLNESS
     Dates: start: 20101017, end: 20101017

REACTIONS (2)
  - HYPERSENSITIVITY [None]
  - DEHYDRATION [None]
